FAERS Safety Report 7578826-5 (Version None)
Quarter: 2011Q2

REPORT INFORMATION
  Report Type: 
  Country: None (occurrence: None)
  Receive Date: 20110628
  Receipt Date: 20110620
  Transmission Date: 20111010
  Serious: Yes (Hospitalization, Other)
  Sender: FDA-Public Use
  Company Number: GB-UCBSA-035687

PATIENT
  Age: 47 Year
  Sex: Male
  Weight: 50 kg

DRUGS (5)
  1. CITALOPRAM HYDROBROMIDE [Concomitant]
  2. OMEPRAZOLE [Concomitant]
  3. LEVETIRACETAM [Suspect]
     Indication: CONVULSION
     Route: 048
     Dates: start: 20110519, end: 20110531
  4. PHENYTOIN [Concomitant]
  5. THIAMINE [Concomitant]

REACTIONS (2)
  - DIPLOPIA [None]
  - OEDEMA PERIPHERAL [None]
